FAERS Safety Report 6264026-8 (Version None)
Quarter: 2009Q3

REPORT INFORMATION
  Report Type: 
  Country: None (occurrence: None)
  Receive Date: 20090710
  Receipt Date: 20090706
  Transmission Date: 20100115
  Serious: Yes (Other)
  Sender: FDA-Public Use
  Company Number: US-ASTRAZENECA-2008UW27514

PATIENT
  Age: 16634 Day
  Sex: Male
  Weight: 124.7 kg

DRUGS (7)
  1. SEROQUEL [Suspect]
     Indication: BIPOLAR DISORDER
     Route: 048
     Dates: start: 20070101, end: 20070607
  2. SEROQUEL [Suspect]
     Indication: SLEEP DISORDER
     Route: 048
     Dates: start: 20070101, end: 20070607
  3. AMITRIPTYLINE HCL [Concomitant]
     Dates: start: 20090201
  4. EFFEXOR [Concomitant]
     Dosage: 75 MG TO 150 MG
     Dates: start: 20010101, end: 20090101
  5. DEPAKOTE [Concomitant]
     Dates: start: 20010101, end: 20090101
  6. TRAZODONE HCL [Concomitant]
     Dates: start: 20010101, end: 20090101
  7. PERPHENZINE [Concomitant]
     Dates: start: 20090301

REACTIONS (5)
  - ADVERSE DRUG REACTION [None]
  - BACK DISORDER [None]
  - DIABETES MELLITUS [None]
  - PNEUMONIA [None]
  - RESPIRATORY DISORDER [None]
